FAERS Safety Report 7639584-9 (Version None)
Quarter: 2011Q3

REPORT INFORMATION
  Report Type: 
  Country: None (occurrence: None)
  Receive Date: 20110727
  Receipt Date: 20110720
  Transmission Date: 20111222
  Serious: Yes (Hospitalization, Other)
  Sender: FDA-Public Use
  Company Number: PT-ABBOTT-11P-130-0837414-00

PATIENT
  Sex: Female
  Weight: 78 kg

DRUGS (4)
  1. HUMIRA [Suspect]
     Indication: CROHN'S DISEASE
     Route: 058
     Dates: start: 20090601, end: 20110701
  2. IMURAN [Concomitant]
     Indication: CROHN'S DISEASE
  3. ESCITALOPRAM [Concomitant]
     Indication: DEPRESSION
  4. MESALAMINE [Concomitant]
     Indication: CROHN'S DISEASE

REACTIONS (2)
  - AMAUROSIS [None]
  - MULTIPLE SCLEROSIS [None]
